FAERS Safety Report 25287412 (Version 2)
Quarter: 2025Q2

REPORT INFORMATION
  Report Type: Spontaneous
  Country: US (occurrence: US)
  Receive Date: 20250509
  Receipt Date: 20250625
  Transmission Date: 20250717
  Serious: Yes (Death, Other)
  Sender: SUNOVION
  Company Number: US-SMPA-2025SPA005333

PATIENT

DRUGS (2)
  1. ORGOVYX [Suspect]
     Active Substance: RELUGOLIX
     Indication: Prostate cancer
     Dosage: 360 MG, SINGLE (TAKE 3 TABLETS (360 MG) BY MOUTH ON THE FIRST DAY OF TREATMENT)
     Route: 048
     Dates: start: 20250408, end: 20250408
  2. ORGOVYX [Suspect]
     Active Substance: RELUGOLIX
     Route: 048
     Dates: end: 20250413

REACTIONS (1)
  - Death [Fatal]

NARRATIVE: CASE EVENT DATE: 20250413
